FAERS Safety Report 8014753-7 (Version None)
Quarter: 2011Q4

REPORT INFORMATION
  Report Type: 
  Country: None (occurrence: None)
  Receive Date: 20111229
  Receipt Date: 20111205
  Transmission Date: 20120403
  Serious: Yes (Hospitalization)
  Sender: FDA-Public Use
  Company Number: IT-PFIZER INC-K201100641

PATIENT
  Age: 69 Year
  Sex: Male

DRUGS (7)
  1. LUVION [Suspect]
     Indication: HYPERTENSIVE HEART DISEASE
     Dosage: 50 MG, 1X/DAY
     Route: 048
     Dates: start: 20110427, end: 20110508
  2. LASIX [Concomitant]
  3. ALTACE [Suspect]
     Indication: HYPERTENSIVE HEART DISEASE
     Dosage: 5 MG, 1X/DAY
     Route: 048
     Dates: start: 20101010, end: 20110502
  4. MAGNESIUM HYDROXIDE TAB [Suspect]
     Indication: HYPERTENSIVE HEART DISEASE
     Dosage: UNK, QD
     Route: 048
     Dates: start: 20101010, end: 20110501
  5. LANSOPRAZOLE [Concomitant]
  6. OMERIA [Concomitant]
     Dosage: UNK
     Dates: start: 20110427, end: 20110508
  7. CARVEDILOL [Suspect]
     Indication: HYPERTENSIVE CARDIOMYOPATHY
     Dosage: 12.5 MG, 1X/DAY
     Route: 048
     Dates: start: 20110427, end: 20110528

REACTIONS (6)
  - DECREASED APPETITE [None]
  - HYPERKALAEMIA [None]
  - DYSPNOEA [None]
  - DRUG INEFFECTIVE [None]
  - METABOLIC ACIDOSIS [None]
  - RENAL FAILURE ACUTE [None]
